FAERS Safety Report 8190070-X (Version None)
Quarter: 2012Q1

REPORT INFORMATION
  Report Type: 
  Country: None (occurrence: None)
  Receive Date: 20120307
  Receipt Date: 20120227
  Transmission Date: 20120608
  Serious: No
  Sender: FDA-Public Use
  Company Number: US-BAYER-2012-020352

PATIENT
  Age: 86 Year
  Sex: Female
  Weight: 60 kg

DRUGS (2)
  1. NAPROXEN (ALEVE) [Suspect]
     Indication: ANALGESIC THERAPY
     Dosage: 1-2 TABS AS NEEDED
     Route: 048
     Dates: start: 20120225, end: 20120226
  2. MULTI-VITAMIN [Concomitant]

REACTIONS (1)
  - DYSPEPSIA [None]
